FAERS Safety Report 17466397 (Version 5)
Quarter: 2020Q4

REPORT INFORMATION
  Report Type: Report from Study
  Country: US (occurrence: US)
  Receive Date: 20200227
  Receipt Date: 20201107
  Transmission Date: 20210113
  Serious: No
  Sender: FDA-Public Use
  Company Number: NVSC2020US054778

PATIENT
  Age: 90 Year
  Sex: Female

DRUGS (2)
  1. BEOVU [Suspect]
     Active Substance: BROLUCIZUMAB-DBLL
     Indication: NEOVASCULAR AGE-RELATED MACULAR DEGENERATION
     Dosage: 6 MG, ONCE/SINGLE (SINGLE DOSE)
     Route: 047
     Dates: start: 20200107
  2. BEOVU [Suspect]
     Active Substance: BROLUCIZUMAB-DBLL
     Dosage: 6 MG, ONCE/SINGLE (SINGLE DOSE, LEFT EYE)
     Route: 047
     Dates: start: 20200319

REACTIONS (6)
  - Asthenopia [Unknown]
  - Hypoacusis [Unknown]
  - Visual impairment [Unknown]
  - Injection site pain [Unknown]
  - Fall [Unknown]
  - Musculoskeletal chest pain [Recovering/Resolving]

NARRATIVE: CASE EVENT DATE: 20200107
